FAERS Safety Report 6652190-8 (Version None)
Quarter: 2010Q1

REPORT INFORMATION
  Report Type: 
  Country: None (occurrence: None)
  Receive Date: 20100325
  Receipt Date: 20100316
  Transmission Date: 20100710
  Serious: Yes (Other)
  Sender: FDA-Public Use
  Company Number: US-WYE-H14188010

PATIENT
  Sex: Female
  Weight: 58.11 kg

DRUGS (1)
  1. PREMPRO [Suspect]
     Indication: HOT FLUSH

REACTIONS (4)
  - CATARACT [None]
  - DRY EYE [None]
  - VISUAL ACUITY REDUCED [None]
  - VISUAL IMPAIRMENT [None]
